FAERS Safety Report 16126980 (Version 2)
Quarter: 2019Q2

REPORT INFORMATION
  Report Type: Spontaneous
  Country: JP (occurrence: JP)
  Receive Date: 20190328
  Receipt Date: 20190422
  Transmission Date: 20190711
  Serious: Yes (Hospitalization, Other)
  Sender: FDA-Public Use
  Company Number: JP-LUPIN PHARMACEUTICALS INC.-2019-01770

PATIENT
  Age: 68 Year
  Sex: Female

DRUGS (2)
  1. LAMIVUDINE. [Suspect]
     Active Substance: LAMIVUDINE
     Indication: CHRONIC HEPATITIS B
     Dosage: 100 MILLIGRAM, QD (FOR 10-YEARS)
     Route: 065
  2. ADEFOVIR [Suspect]
     Active Substance: ADEFOVIR
     Indication: CHRONIC HEPATITIS B
     Dosage: 10 MILLIGRAM, QD (FOR 06-YEARS)
     Route: 065

REACTIONS (4)
  - Myopathy toxic [Unknown]
  - Mitochondrial DNA deletion [Unknown]
  - Muscle atrophy [Unknown]
  - Muscular weakness [Unknown]
